FAERS Safety Report 7683044-6 (Version None)
Quarter: 2011Q3

REPORT INFORMATION
  Report Type: 
  Country: None (occurrence: None)
  Receive Date: 20110815
  Receipt Date: 20110805
  Transmission Date: 20111222
  Serious: Yes (Hospitalization)
  Sender: FDA-Public Use
  Company Number: JP-MILLENNIUM PHARMACEUTICALS, INC.-2011-03160

PATIENT

DRUGS (13)
  1. LANSOPRAZOLE [Concomitant]
     Indication: PROPHYLAXIS AGAINST GASTROINTESTINAL ULCER
     Dosage: 15 MG, UNK
     Route: 048
     Dates: start: 20110117, end: 20110719
  2. AMOBAN [Concomitant]
     Indication: INSOMNIA
     Dosage: 7.5 MG, UNK
     Route: 048
     Dates: start: 20110211, end: 20110719
  3. MYTEAR [Concomitant]
     Indication: DRY EYE
     Dosage: UNK
     Route: 031
     Dates: start: 20110131
  4. SENNOSIDE                          /00571902/ [Concomitant]
     Indication: CONSTIPATION
     Dosage: 24 MG, UNK
     Route: 048
     Dates: start: 20110211, end: 20110719
  5. PANOBINOSTAT [Concomitant]
     Indication: MULTIPLE MYELOMA
     Dosage: 20 MG, UNK
     Route: 048
     Dates: start: 20110117, end: 20110716
  6. LASIX [Concomitant]
     Indication: OEDEMA
     Dosage: 10 MG, UNK
     Route: 048
     Dates: start: 20110215, end: 20110719
  7. ACYCLOVIR [Concomitant]
     Indication: ANTIVIRAL PROPHYLAXIS
     Dosage: 200 MG, UNK
     Route: 048
     Dates: start: 20110117, end: 20110719
  8. HUSTAZOL                           /00398402/ [Concomitant]
     Indication: COUGH
     Dosage: 10 MG, UNK
     Route: 048
     Dates: start: 20110712, end: 20110718
  9. VELCADE [Suspect]
     Indication: MULTIPLE MYELOMA
     Dosage: 1 MG/M2, UNK
     Route: 042
     Dates: start: 20110117, end: 20110715
  10. DEXAMETHASONE [Suspect]
     Indication: MULTIPLE MYELOMA
     Dosage: 20 MG, UNK
     Route: 048
     Dates: start: 20110117, end: 20110716
  11. LYRICA [Concomitant]
     Indication: NEUROPATHY PERIPHERAL
     Dosage: 75 MG, UNK
     Route: 048
     Dates: start: 20110131, end: 20110719
  12. ACETAMINOPHEN [Concomitant]
     Indication: NEURALGIA
     Dosage: 1200 MG, UNK
     Route: 048
     Dates: start: 20110506, end: 20110719
  13. HUSTAZOL                           /00398402/ [Concomitant]
     Dosage: 30 MG, UNK
     Route: 048
     Dates: start: 20110718, end: 20110719

REACTIONS (6)
  - UPPER RESPIRATORY TRACT INFLAMMATION [None]
  - RHINORRHOEA [None]
  - CANDIDIASIS [None]
  - COLITIS [None]
  - NEUROPATHY PERIPHERAL [None]
  - COUGH [None]
